FAERS Safety Report 22635699 (Version 10)
Quarter: 2024Q3

REPORT INFORMATION
  Report Type: Report from Study
  Country: CO (occurrence: CO)
  Receive Date: 20230623
  Receipt Date: 20240701
  Transmission Date: 20241016
  Serious: Yes (Other)
  Sender: AMGEN
  Company Number: CO-AMGEN-COLSL2022109484

PATIENT
  Age: 49 Year
  Sex: Male
  Weight: 85 kg

DRUGS (4)
  1. VECTIBIX [Suspect]
     Active Substance: PANITUMUMAB
     Indication: Colorectal cancer metastatic
     Dosage: 320 MILLIGRAM, Q2WK (BIWEEKLY)
     Route: 042
     Dates: start: 20220607, end: 2022
  2. VECTIBIX [Suspect]
     Active Substance: PANITUMUMAB
     Dosage: 100 MILLIGRAM, Q2WK (BIWEEKLY)
     Route: 040
     Dates: start: 2022
  3. VECTIBIX [Suspect]
     Active Substance: PANITUMUMAB
     Dosage: UNK, Q2WK
     Route: 042
     Dates: start: 20220621, end: 20230906
  4. VECTIBIX [Suspect]
     Active Substance: PANITUMUMAB
     Dosage: UNK UNK, Q2WK (BIWEEKLY)
     Route: 042
     Dates: start: 20240322

REACTIONS (31)
  - Metastases to liver [Not Recovered/Not Resolved]
  - Metastases to gallbladder [Not Recovered/Not Resolved]
  - Lung neoplasm malignant [Not Recovered/Not Resolved]
  - Haematemesis [Not Recovered/Not Resolved]
  - Blindness [Not Recovered/Not Resolved]
  - Glaucoma [Not Recovered/Not Resolved]
  - Procedural haemorrhage [Recovered/Resolved]
  - Oral discomfort [Recovered/Resolved]
  - Skin burning sensation [Not Recovered/Not Resolved]
  - Stoma site ulcer [Not Recovered/Not Resolved]
  - Skin reaction [Not Recovered/Not Resolved]
  - Hyperkeratosis [Not Recovered/Not Resolved]
  - Acne pustular [Not Recovered/Not Resolved]
  - Swelling face [Not Recovered/Not Resolved]
  - Skin exfoliation [Not Recovered/Not Resolved]
  - Rash [Not Recovered/Not Resolved]
  - Skin ulcer [Not Recovered/Not Resolved]
  - Cough [Not Recovered/Not Resolved]
  - Weight increased [Not Recovered/Not Resolved]
  - Gait disturbance [Not Recovered/Not Resolved]
  - Mass [Not Recovered/Not Resolved]
  - Blood test abnormal [Not Recovered/Not Resolved]
  - Eye inflammation [Not Recovered/Not Resolved]
  - Influenza [Recovered/Resolved]
  - Renal disorder [Not Recovered/Not Resolved]
  - Vein disorder [Not Recovered/Not Resolved]
  - Skin laceration [Not Recovered/Not Resolved]
  - Discouragement [Not Recovered/Not Resolved]
  - Dermatitis [Not Recovered/Not Resolved]
  - Constipation [Not Recovered/Not Resolved]
  - Pyrexia [Not Recovered/Not Resolved]

NARRATIVE: CASE EVENT DATE: 20220101
